FAERS Safety Report 10028514 (Version 1)
Quarter: 2014Q1

REPORT INFORMATION
  Report Type: Spontaneous
  Country: DE (occurrence: None)
  Receive Date: 20140319
  Receipt Date: 20140319
  Transmission Date: 20141002
  Serious: Yes (Congenital Anomaly)
  Sender: FDA-Public Use
  Company Number: IPC201403-000112

PATIENT
  Sex: Male

DRUGS (6)
  1. METOPROLOL TARTRATE [Suspect]
  2. ENALAPRIL (ENALAPRIL) (ENALAPRIL) [Suspect]
  3. LERCANIDIPINE [Suspect]
  4. NIFEDIPINE (NIFEDIPINE) (NIFEDIPINE) [Suspect]
  5. METHYLDOPA [Suspect]
  6. OLMESARTAN [Suspect]

REACTIONS (6)
  - Nipple disorder [None]
  - Congenital anomaly [None]
  - Congenital choroid plexus cyst [None]
  - Deafness unilateral [None]
  - Caesarean section [None]
  - Kidney duplex [None]
